FAERS Safety Report 19389949 (Version 2)
Quarter: 2021Q3

REPORT INFORMATION
  Report Type: Report from Study
  Country: US (occurrence: US)
  Receive Date: 20210608
  Receipt Date: 20210712
  Transmission Date: 20211014
  Serious: Yes (Hospitalization, Other)
  Sender: FDA-Public Use
  Company Number: US-TAKEDA-2021TUS024173

PATIENT
  Age: 68 Year
  Sex: Male

DRUGS (8)
  1. TEDUGLUTIDE [Suspect]
     Active Substance: TEDUGLUTIDE
     Indication: SHORT-BOWEL SYNDROME
     Dosage: 0.334 MILLILITER, QD
     Route: 050
     Dates: start: 20210404
  2. TEDUGLUTIDE [Suspect]
     Active Substance: TEDUGLUTIDE
     Indication: SHORT-BOWEL SYNDROME
     Dosage: 0.334 MILLILITER, QD
     Route: 058
     Dates: start: 20210407
  3. TEDUGLUTIDE [Suspect]
     Active Substance: TEDUGLUTIDE
     Indication: SHORT-BOWEL SYNDROME
     Dosage: 0.334 MILLILITER, QD
     Route: 050
     Dates: start: 20210404
  4. TEDUGLUTIDE [Suspect]
     Active Substance: TEDUGLUTIDE
     Indication: SHORT-BOWEL SYNDROME
     Dosage: 0.334 MILLILITER, QD
     Route: 058
     Dates: start: 20210407
  5. TEDUGLUTIDE [Suspect]
     Active Substance: TEDUGLUTIDE
     Indication: SHORT-BOWEL SYNDROME
     Dosage: 0.334 MILLILITER, QD
     Route: 050
     Dates: start: 20210404
  6. TEDUGLUTIDE [Suspect]
     Active Substance: TEDUGLUTIDE
     Indication: SHORT-BOWEL SYNDROME
     Dosage: 0.334 MILLILITER, QD
     Route: 058
     Dates: start: 20210407
  7. TEDUGLUTIDE [Suspect]
     Active Substance: TEDUGLUTIDE
     Indication: SHORT-BOWEL SYNDROME
     Dosage: 0.334 MILLILITER, QD
     Route: 050
     Dates: start: 20210404
  8. TEDUGLUTIDE [Suspect]
     Active Substance: TEDUGLUTIDE
     Indication: SHORT-BOWEL SYNDROME
     Dosage: 0.334 MILLILITER, QD
     Route: 058
     Dates: start: 20210407

REACTIONS (11)
  - Nausea [Recovered/Resolved]
  - Abdominal pain [Unknown]
  - Decreased appetite [Unknown]
  - Chills [Recovered/Resolved]
  - Weight decreased [Unknown]
  - Stoma complication [Not Recovered/Not Resolved]
  - Pyrexia [Unknown]
  - Clostridium difficile colitis [Unknown]
  - Back pain [Unknown]
  - Flatulence [Not Recovered/Not Resolved]
  - Peripheral swelling [Unknown]

NARRATIVE: CASE EVENT DATE: 20210409
